FAERS Safety Report 4855039-9 (Version None)
Quarter: 2005Q4

REPORT INFORMATION
  Report Type: 
  Country: None (occurrence: None)
  Receive Date: 20051214
  Receipt Date: 20051201
  Transmission Date: 20060501
  Serious: Yes (Other)
  Sender: FDA-Public Use
  Company Number: 2005163551

PATIENT
  Age: 63 Year
  Sex: Male
  Weight: 72.03 kg

DRUGS (6)
  1. ATORVASTATIN CALCIUM [Suspect]
     Indication: BLOOD CHOLESTEROL INCREASED
     Dosage: (10 MG, UNKNOWN), ORAL
     Route: 048
     Dates: start: 20051030, end: 20051031
  2. SIMVASTATIN [Suspect]
     Indication: BLOOD CHOLESTEROL INCREASED
     Dosage: (20 MG, UNKNOWN), ORAL
     Route: 048
     Dates: start: 19950101, end: 20050101
  3. RAMIPRIL [Concomitant]
  4. LANSOPRAZOLE [Concomitant]
  5. ASPIRIN [Concomitant]
  6. SERETIDE (FLUTICASONE PROPIONATE, SALMETEROL XINAFOATE) [Concomitant]

REACTIONS (2)
  - MUSCLE SPASMS [None]
  - MYALGIA [None]
